FAERS Safety Report 24351377 (Version 1)
Quarter: 2024Q3

REPORT INFORMATION
  Report Type: Report from Study
  Country: IT (occurrence: IT)
  Receive Date: 20240923
  Receipt Date: 20240923
  Transmission Date: 20241016
  Serious: No
  Sender: ROCHE
  Company Number: IT-ROCHE-2086865

PATIENT
  Age: 68 Year
  Sex: Female
  Weight: 64.0 kg

DRUGS (26)
  1. HERCEPTIN [Suspect]
     Active Substance: TRASTUZUMAB
     Indication: HER2 positive breast cancer
     Route: 042
     Dates: start: 20170908, end: 20170908
  2. HERCEPTIN [Suspect]
     Active Substance: TRASTUZUMAB
     Route: 042
     Dates: start: 20170929
  3. HERCEPTIN [Suspect]
     Active Substance: TRASTUZUMAB
     Route: 042
     Dates: start: 20170929, end: 20181228
  4. HERCEPTIN [Suspect]
     Active Substance: TRASTUZUMAB
     Route: 042
     Dates: start: 20190118
  5. PERJETA [Suspect]
     Active Substance: PERTUZUMAB
     Indication: HER2 positive breast cancer
     Route: 042
     Dates: start: 20170908, end: 20170908
  6. PERJETA [Suspect]
     Active Substance: PERTUZUMAB
     Route: 042
     Dates: start: 20170929
  7. TAXOL [Suspect]
     Active Substance: PACLITAXEL
     Indication: HER2 positive breast cancer
     Route: 042
     Dates: start: 20170908, end: 20171229
  8. DEXAMETHASONE [Concomitant]
     Active Substance: DEXAMETHASONE
     Dosage: ONGOING = CHECKED
     Dates: start: 20160219
  9. CHLORPHENIRAMINE MALEATE [Concomitant]
     Active Substance: CHLORPHENIRAMINE MALEATE
     Dosage: ONGOING = NOT CHECKED
     Dates: start: 20160219, end: 20171229
  10. RANITIDINE [Concomitant]
     Active Substance: RANITIDINE
     Dosage: ONGOING = NOT CHECKED
     Dates: start: 20160219, end: 20171229
  11. CANDESARTAN CILEXETIL [Concomitant]
     Active Substance: CANDESARTAN CILEXETIL
     Indication: Ejection fraction decreased
     Dosage: ONGOING = CHECKED
     Dates: start: 20180528
  12. PREGABALIN [Concomitant]
     Active Substance: PREGABALIN
     Indication: Pain in jaw
     Dosage: ONGOING = CHECKED
     Dates: start: 20180824
  13. OMEPRAZOLE [Concomitant]
     Active Substance: OMEPRAZOLE
     Indication: Gastrooesophageal reflux disease
     Dates: start: 20190508, end: 20190522
  14. RIFAXIMIN [Concomitant]
     Active Substance: RIFAXIMIN
     Indication: Diverticulitis
     Dates: start: 20190508
  15. RAMIPRIL [Concomitant]
     Active Substance: RAMIPRIL
     Dosage: 2.50 MG (MILLIGRAM) CAPSULE PO (ORAL) BID (TWICE A DAY)
     Dates: start: 20180426, end: 20180527
  16. ONDANSETRON [Concomitant]
     Active Substance: ONDANSETRON
     Dosage: 8.00 MG (MILLIGRAM) LIQUID IV (INTRAVENOUS) OTHER
     Dates: start: 20180914
  17. PANTOPRAZOLE SODIUM [Concomitant]
     Active Substance: PANTOPRAZOLE SODIUM
     Dosage: 20.00 MG (MILLIGRAM) CAPSULE PO (ORAL) QOD (EVERY OTHER DAY)
     Dates: start: 20200306, end: 20200416
  18. ESOMEPRAZOLE [Concomitant]
     Active Substance: ESOMEPRAZOLE
     Dosage: 40.00 MG (MILLIGRAM) CAPSULE PO (ORAL) QOD (EVERY OTHER DAY)
     Dates: start: 20200417
  19. PREDNISONE [Concomitant]
     Active Substance: PREDNISONE
     Route: 048
     Dates: start: 20211015, end: 20211029
  20. PREDNISONE [Concomitant]
     Active Substance: PREDNISONE
     Route: 048
     Dates: start: 20211030, end: 20211106
  21. PREDNISONE [Concomitant]
     Active Substance: PREDNISONE
     Route: 048
     Dates: start: 20211107, end: 20211114
  22. PREDNISONE [Concomitant]
     Active Substance: PREDNISONE
     Route: 048
     Dates: start: 20211115, end: 20211122
  23. LEVOFLOXACIN [Concomitant]
     Active Substance: LEVOFLOXACIN
  24. HEPARIN [Concomitant]
     Active Substance: HEPARIN SODIUM
  25. ENOXAPARIN [Concomitant]
     Active Substance: ENOXAPARIN
  26. PROVENAL [Concomitant]

REACTIONS (4)
  - Asthenia [Recovered/Resolved]
  - Glossitis [Recovered/Resolved]
  - Diarrhoea [Recovered/Resolved]
  - Anaemia [Recovered/Resolved]

NARRATIVE: CASE EVENT DATE: 20171111
